FAERS Safety Report 23245487 (Version 1)
Quarter: 2023Q4

REPORT INFORMATION
  Report Type: Spontaneous
  Country: US (occurrence: US)
  Receive Date: 20231130
  Receipt Date: 20231130
  Transmission Date: 20240110
  Serious: Yes (Hospitalization, Other)
  Sender: FDA-Public Use
  Company Number: US-BRISTOL-MYERS SQUIBB COMPANY-2023-173362

PATIENT
  Age: 63 Year
  Sex: Male

DRUGS (1)
  1. NIVOLUMAB [Suspect]
     Active Substance: NIVOLUMAB
     Indication: Metastatic malignant melanoma
     Dosage: 260-271 MG/2 WEEKS, 4 MONTHS, 9 CYCLES)
     Dates: start: 2016

REACTIONS (6)
  - Colitis [Unknown]
  - Encephalitis [Unknown]
  - Central hypothyroidism [Unknown]
  - Renal injury [Unknown]
  - Adrenal insufficiency [Unknown]
  - Muscle atrophy [Unknown]
